FAERS Safety Report 23566116 (Version 1)
Quarter: 2024Q1

REPORT INFORMATION
  Report Type: Spontaneous
  Country: US (occurrence: None)
  Receive Date: 20240223
  Receipt Date: 20240223
  Transmission Date: 20240409
  Serious: Yes (Hospitalization)
  Sender: FDA-Public Use
  Company Number: None

PATIENT
  Age: 39 Year
  Sex: Female

DRUGS (5)
  1. DUPIXENT [Suspect]
     Active Substance: DUPILUMAB
     Indication: Nasal polyps
     Dosage: FREQUENCY : EVERY OTHER WEEK;?
     Route: 058
     Dates: start: 20240119, end: 20240216
  2. PREDNISONE [Concomitant]
     Active Substance: PREDNISONE
  3. DULERA [Concomitant]
     Active Substance: FORMOTEROL FUMARATE DIHYDRATE\MOMETASONE FUROATE
  4. ALBUTEROL [Concomitant]
     Active Substance: ALBUTEROL
  5. DOXYCYCLINE [Concomitant]
     Active Substance: DOXYCYCLINE

REACTIONS (2)
  - Cavernous sinus thrombosis [None]
  - Metastases to meninges [None]

NARRATIVE: CASE EVENT DATE: 20240216
